FAERS Safety Report 17150361 (Version 1)
Quarter: 2019Q4

REPORT INFORMATION
  Report Type: Spontaneous
  Country: TW (occurrence: TW)
  Receive Date: 20191213
  Receipt Date: 20191213
  Transmission Date: 20200122
  Serious: Yes (Hospitalization, Other)
  Sender: FDA-Public Use
  Company Number: TW-VIIV HEALTHCARE LIMITED-TW2019GSK223372

PATIENT
  Age: 32 Year
  Sex: Male

DRUGS (2)
  1. ABACAVIRSULPHATE+DOLUTEGRAVIR+LAMIVUDINE [Suspect]
     Active Substance: ABACAVIR SULFATE\DOLUTEGRAVIR SODIUM\LAMIVUDINE
     Indication: HIV INFECTION
     Dosage: UNK
  2. PREDNISOLONE. [Suspect]
     Active Substance: PREDNISOLONE
     Indication: MYCOBACTERIUM AVIUM COMPLEX IMMUNE RESTORATION DISEASE
     Dosage: 15 MG, BID

REACTIONS (18)
  - Pyrexia [Recovered/Resolved]
  - Decreased appetite [Recovered/Resolved]
  - Malaise [Recovered/Resolved]
  - Abdominal pain [Recovered/Resolved]
  - Splenomegaly [Recovered/Resolved]
  - Abdominal rebound tenderness [Recovered/Resolved]
  - Alanine aminotransferase increased [Recovered/Resolved]
  - Colitis [Recovered/Resolved]
  - Immune reconstitution inflammatory syndrome [Recovered/Resolved]
  - Lymphadenopathy [Recovered/Resolved]
  - Gastrointestinal sounds abnormal [Recovered/Resolved]
  - Jejunal perforation [Recovered/Resolved]
  - Cytomegalovirus gastritis [Recovered/Resolved]
  - Abdominal rigidity [Recovered/Resolved]
  - Cytomegalovirus duodenitis [Recovered/Resolved]
  - Nausea [Recovered/Resolved]
  - Diarrhoea [Recovered/Resolved]
  - Mycobacterium avium complex immune restoration disease [Recovered/Resolved]
